FAERS Safety Report 10056537 (Version 1)
Quarter: 2014Q2

REPORT INFORMATION
  Report Type: Spontaneous
  Country: US (occurrence: US)
  Receive Date: 20140403
  Receipt Date: 20140403
  Transmission Date: 20141212
  Serious: No
  Sender: FDA-Public Use
  Company Number: US-PFIZER INC-2014090299

PATIENT
  Age: 80 Year
  Sex: Female
  Weight: 65.76 kg

DRUGS (1)
  1. TIKOSYN [Suspect]
     Dosage: 0.25 MG, 2X/DAY
     Route: 048
     Dates: start: 201312

REACTIONS (2)
  - Thyroid disorder [Unknown]
  - Product physical issue [Unknown]
